FAERS Safety Report 4812007-0 (Version None)
Quarter: 2005Q4

REPORT INFORMATION
  Report Type: 
  Country: None (occurrence: None)
  Receive Date: 20051027
  Receipt Date: 20051027
  Transmission Date: 20060501
  Serious: Yes (Other)
  Sender: FDA-Public Use
  Company Number: None

PATIENT
  Sex: Male
  Weight: 101 kg

DRUGS (4)
  1. NOVOLIN 70/30 [Suspect]
     Indication: DIABETES MELLITUS
     Dosage: 50 UNITS   BID  SQ
     Route: 058
  2. ATENOLOL [Concomitant]
  3. LISINOPRIL [Concomitant]
  4. TERAZOSIN [Concomitant]

REACTIONS (2)
  - BLOOD GLUCOSE INCREASED [None]
  - POOR QUALITY DRUG ADMINISTERED [None]
